FAERS Safety Report 23066120 (Version 1)
Quarter: 2023Q4

REPORT INFORMATION
  Report Type: Spontaneous
  Country: IT (occurrence: IT)
  Receive Date: 20231014
  Receipt Date: 20231014
  Transmission Date: 20240110
  Serious: Yes (Other)
  Sender: FDA-Public Use
  Company Number: None

PATIENT
  Age: 83 Year
  Sex: Male

DRUGS (10)
  1. TIGECYCLINE [Suspect]
     Active Substance: TIGECYCLINE
     Indication: Abdominal abscess
     Dosage: 50MG 2FL IN 250CC OF PHYSIOLOGICAL SALINE
     Dates: start: 20230823, end: 20230824
  2. AZOPT [Concomitant]
     Active Substance: BRINZOLAMIDE
     Dosage: AZOPT COLL 1 FL 5 ML 10 MG/ML 1 GTT OO DAY
  3. FUROSEMIDE [Concomitant]
     Active Substance: FUROSEMIDE
     Dosage: FUROSEMIDE MY 30 TABLETS 25 MG 2 TABLETS PER DAY
  4. TERAZOSIN HYDROCHLORIDE [Concomitant]
     Active Substance: TERAZOSIN HYDROCHLORIDE
     Dosage: TERAPROST 14 TABLETS DIV 5 MG 1 PER DAY
  5. BISOPROLOL [Concomitant]
     Active Substance: BISOPROLOL\BISOPROLOL FUMARATE
     Dosage: CONGESCOR 28 COATED TABLETS 2.5 MG 1 TABLET PER DAY
  6. TIMOLOL MALEATE\TRAVOPROST [Concomitant]
     Active Substance: TIMOLOL MALEATE\TRAVOPROST
     Dosage: DUOTRAV COLL FL40 MCG+5MG/ML 1 GTT OO 1 DAY
  7. ERYTHROPOIETIN [Concomitant]
     Active Substance: ERYTHROPOIETIN
     Dosage: BINOCRIT 6 SIR 5000 IU 0.5 ML, 1 FL SC ON TUESDAY.
  8. LINEZOLID [Concomitant]
     Active Substance: LINEZOLID
     Dosage: ZYVOXID 10 COATED TABLETS 600 MG BLIST 2 TABLETS PER DAY
  9. LINAGLIPTIN [Concomitant]
     Active Substance: LINAGLIPTIN
     Dosage: TRAJENTA 28 COATED TABLETS 5 MG 1 PER DAY
  10. NORVASC [Concomitant]
     Active Substance: AMLODIPINE BESYLATE
     Dosage: NORVASC 14 TABLETS 10 MG 1 TABLET PER DAY

REACTIONS (3)
  - Bronchospasm [Recovered/Resolved]
  - Drug hypersensitivity [Recovered/Resolved]
  - Acute respiratory failure [Recovered/Resolved]

NARRATIVE: CASE EVENT DATE: 20230823
